FAERS Safety Report 8882569 (Version 1)
Quarter: 2012Q4

REPORT INFORMATION
  Report Type: 
  Country: US (occurrence: US)
  Receive Date: 20121102
  Receipt Date: 20121102
  Transmission Date: 20130627
  Serious: Yes (Other)
  Sender: FDA-Public Use
  Company Number: PHEH2012US021336

PATIENT
  Age: 60 Year
  Sex: Male
  Weight: 106.58 kg

DRUGS (11)
  1. GLEEVEC [Suspect]
     Dosage: 400 mg, daily
     Route: 048
  2. WARFARIN [Concomitant]
     Dosage: 5 mg, UNK
  3. CARVEDILOL [Concomitant]
     Dosage: 25 mg, UNK
  4. LORAZEPAM [Concomitant]
     Dosage: 1 mg, UNK
  5. METHYLPRED PAK [Concomitant]
     Dosage: 4 mg, UNK
  6. DIGOXIN [Concomitant]
     Dosage: 0.25 mg, UNK
  7. VITAMIIN C [Concomitant]
     Dosage: 500 mg, UNK
  8. CARNITINE [Concomitant]
     Dosage: 250 mg, UNK
  9. PERCOCET [Concomitant]
     Dosage: 10 to 325 mg
  10. CITRACAL PLUS [Concomitant]
     Dosage: UNK UKN, UNK
  11. CIPROFLOXACIN [Concomitant]
     Dosage: 250 mg, UNK

REACTIONS (1)
  - Osteomyelitis [Unknown]
